FAERS Safety Report 14105062 (Version 1)
Quarter: 2017Q4

REPORT INFORMATION
  Report Type: Spontaneous
  Country: US (occurrence: US)
  Receive Date: 20171018
  Receipt Date: 20171018
  Transmission Date: 20180321
  Serious: Yes (Other)
  Sender: FDA-Public Use
  Company Number: US-PFIZER INC-2017443784

PATIENT
  Age: 10 Year
  Sex: Female

DRUGS (1)
  1. GENOTROPIN [Suspect]
     Active Substance: SOMATROPIN
     Indication: HYPOPITUITARISM
     Dosage: 1 MG, CYCLIC (INJECT 1 MG UNDER THE SKIN) (SIX NIGHTS PER WEEK)
     Dates: start: 20170728

REACTIONS (2)
  - Tourette^s disorder [Unknown]
  - Condition aggravated [Unknown]
